FAERS Safety Report 21492767 (Version 1)
Quarter: 2022Q4

REPORT INFORMATION
  Report Type: Report from Study
  Country: CA (occurrence: CA)
  Receive Date: 20221021
  Receipt Date: 20221021
  Transmission Date: 20230112
  Serious: Yes (Death)
  Sender: FDA-Public Use
  Company Number: CA-NOVARTISPH-NVSC2022CA237454

PATIENT
  Age: 65 Year
  Sex: Female

DRUGS (2)
  1. FULVESTRANT [Suspect]
     Active Substance: FULVESTRANT
     Indication: Product used for unknown indication
     Dosage: 250 MG, OTHER
     Route: 030
     Dates: start: 20220208
  2. FULVESTRANT [Suspect]
     Active Substance: FULVESTRANT
     Dosage: UNK (250/ 5 MG/ML) (Q 28 DAYS)
     Route: 030

REACTIONS (1)
  - Death [Fatal]
